FAERS Safety Report 8914214 (Version 3)
Quarter: 2013Q1

REPORT INFORMATION
  Report Type: Spontaneous
  Country: JP (occurrence: JP)
  Receive Date: 20121119
  Receipt Date: 20130116
  Transmission Date: 20140127
  Serious: Yes (Life-Threatening)
  Sender: FDA-Public Use
  Company Number: JP-AMGEN-JPNSP2012072434

PATIENT
  Sex: Female
  Weight: 46.4 kg

DRUGS (9)
  1. ENBREL [Suspect]
     Indication: RHEUMATOID ARTHRITIS
     Dosage: 50 MG, WEEKLY
     Route: 058
     Dates: end: 20121012
  2. PROGRAF [Suspect]
     Indication: RHEUMATOID ARTHRITIS
     Dosage: 2 MG, 1X/DAY
     Route: 048
     Dates: start: 20110921, end: 20121012
  3. PARIET [Concomitant]
     Indication: PROPHYLAXIS AGAINST GASTROINTESTINAL ULCER
     Dosage: 10 MG, 1X/DAY
     Route: 048
  4. PREDNISOLONE [Concomitant]
     Indication: RHEUMATOID ARTHRITIS
     Dosage: 2 MG IN THE MORNING AND 3 MG IN THE EVENING DAILY
     Route: 048
  5. HALCION [Concomitant]
     Indication: INSOMNIA
     Dosage: 0.25 MG, 1X/DAY
     Route: 048
     Dates: start: 20110609
  6. MAGMITT [Concomitant]
     Indication: CONSTIPATION
     Dosage: 3X/DAY
     Route: 048
     Dates: start: 20111201
  7. BENET [Concomitant]
     Indication: OSTEOPOROSIS PROPHYLAXIS
     Dosage: 17.5 MG, WEEKLY
     Route: 048
     Dates: start: 20120329
  8. BLOPRESS [Concomitant]
     Indication: HYPERTENSION
     Dosage: 4 MG, 1X/DAY
     Route: 048
     Dates: start: 20120622
  9. LUVOX [Concomitant]
     Indication: FIBROMYALGIA
     Dosage: 25 MG, 1X/DAY
     Route: 048
     Dates: start: 20110914, end: 20121114

REACTIONS (1)
  - Lung neoplasm malignant [Not Recovered/Not Resolved]
